FAERS Safety Report 8044265-6 (Version None)
Quarter: 2012Q1

REPORT INFORMATION
  Report Type: 
  Country: None (occurrence: None)
  Receive Date: 20120113
  Receipt Date: 20120106
  Transmission Date: 20120608
  Serious: Yes (Hospitalization, Other)
  Sender: FDA-Public Use
  Company Number: US-BAYER-2011-061182

PATIENT
  Age: 33 Year
  Sex: Female
  Weight: 89.796 kg

DRUGS (6)
  1. SARAFEM [Concomitant]
     Dosage: 20 MG, QD
  2. YAZ [Suspect]
     Indication: PREMENSTRUAL SYNDROME
  3. FLUOXETINE HCL [Concomitant]
     Indication: DEPRESSION
  4. YASMIN [Suspect]
     Indication: CONTRACEPTION
     Dosage: UNK
     Dates: start: 20050121, end: 20050412
  5. YASMIN [Suspect]
     Indication: PREMENSTRUAL SYNDROME
  6. YAZ [Suspect]
     Indication: CONTRACEPTION
     Dosage: UNK
     Dates: start: 20080527, end: 20080726

REACTIONS (12)
  - ANXIETY [None]
  - PAIN [None]
  - FATIGUE [None]
  - EMOTIONAL DISTRESS [None]
  - BACK PAIN [None]
  - CHEST PAIN [None]
  - FEAR [None]
  - PULMONARY EMBOLISM [None]
  - INJURY [None]
  - DYSPNOEA [None]
  - DEEP VEIN THROMBOSIS [None]
  - GENERAL PHYSICAL HEALTH DETERIORATION [None]
